FAERS Safety Report 25403703 (Version 1)
Quarter: 2025Q2

REPORT INFORMATION
  Report Type: Spontaneous
  Country: CN (occurrence: CN)
  Receive Date: 20250605
  Receipt Date: 20250605
  Transmission Date: 20250716
  Serious: Yes (Other)
  Sender: BEIGENE
  Company Number: CN-BEIGENE-BGN-2025-008711

PATIENT
  Age: 43 Year
  Weight: 56 kg

DRUGS (8)
  1. TISLELIZUMAB [Suspect]
     Active Substance: TISLELIZUMAB
     Indication: Nonkeratinising carcinoma of nasopharynx
     Dosage: 0.2 GRAM D1, Q3WK
  2. TISLELIZUMAB [Suspect]
     Active Substance: TISLELIZUMAB
     Dosage: 0.2 GRAM D1, Q3WK
     Route: 041
  3. TISLELIZUMAB [Suspect]
     Active Substance: TISLELIZUMAB
     Dosage: 0.2 GRAM D1, Q3WK
     Route: 041
  4. TISLELIZUMAB [Suspect]
     Active Substance: TISLELIZUMAB
     Dosage: 0.2 GRAM D1, Q3WK
  5. GEMCITABINE [Suspect]
     Active Substance: GEMCITABINE
     Indication: Nonkeratinising carcinoma of nasopharynx
     Dosage: 1.7 GRAM D1 D8 Q3WK
     Route: 041
  6. GEMCITABINE [Suspect]
     Active Substance: GEMCITABINE
     Dosage: 1.7 GRAM D1 D8 Q3WK
  7. CISPLATIN [Suspect]
     Active Substance: CISPLATIN
     Indication: Nonkeratinising carcinoma of nasopharynx
     Dosage: 120 MILLIGRAM, Q3WK D1
     Route: 041
  8. CISPLATIN [Suspect]
     Active Substance: CISPLATIN
     Dosage: 120 MILLIGRAM, Q3WK D1

REACTIONS (1)
  - Myelosuppression [Recovering/Resolving]
